FAERS Safety Report 8019860-0 (Version None)
Quarter: 2012Q1

REPORT INFORMATION
  Report Type: 
  Country: None (occurrence: None)
  Receive Date: 20120103
  Receipt Date: 20111221
  Transmission Date: 20120608
  Serious: Yes (Hospitalization, Other)
  Sender: FDA-Public Use
  Company Number: JP-GENZYME-THYM-1001733

PATIENT
  Sex: Female
  Weight: 41 kg

DRUGS (14)
  1. TOTAL BODY IRRADIATION (12GY) [Concomitant]
     Indication: BONE MARROW CONDITIONING REGIMEN
     Dosage: UNK
     Dates: start: 20091130, end: 20091203
  2. VANCOMYCIN [Concomitant]
     Indication: ANTIBIOTIC PROPHYLAXIS
     Dosage: UNK
     Dates: start: 20101006, end: 20101019
  3. THYMOGLOBULIN [Suspect]
     Indication: ACUTE GRAFT VERSUS HOST DISEASE
     Dosage: UNK
     Dates: start: 20100816, end: 20100818
  4. PREDNISOLONE [Concomitant]
     Indication: PREMEDICATION
     Dosage: UNK
     Dates: start: 20091209, end: 20091213
  5. CEFEPIME HYDROCHLORIDE [Concomitant]
     Indication: ANTIBIOTIC PROPHYLAXIS
     Dosage: UNK
     Dates: start: 20091207, end: 20100106
  6. THYMOGLOBULIN [Suspect]
     Dosage: UNK
     Dates: start: 20101015, end: 20101015
  7. MICAFUNGIN SODIUM [Concomitant]
     Indication: ANTIFUNGAL PROPHYLAXIS
     Dosage: UNK
     Dates: start: 20091201, end: 20100105
  8. TACROLIMUS [Concomitant]
     Indication: PROPHYLAXIS AGAINST GRAFT VERSUS HOST DISEASE
     Dosage: UNK
     Dates: start: 20091207, end: 20100606
  9. FILGRASTIM [Concomitant]
     Indication: INFECTION PROPHYLAXIS
     Dosage: UNK
     Dates: start: 20091211, end: 20100102
  10. CYCLOPHOSPHAMIDE [Concomitant]
     Indication: BONE MARROW CONDITIONING REGIMEN
     Dosage: UNK
     Dates: start: 20091127, end: 20091128
  11. METHYLPREDNISOLONE SODIUM SUCCINATE [Concomitant]
     Indication: PREMEDICATION
     Dosage: UNK
     Dates: start: 20091204, end: 20091208
  12. THYMOGLOBULIN [Suspect]
     Indication: BONE MARROW CONDITIONING REGIMEN
     Dosage: 40 MG, QD
     Route: 042
     Dates: start: 20091203, end: 20091205
  13. THYMOGLOBULIN [Suspect]
     Dosage: UNK
     Dates: start: 20101101, end: 20101101
  14. DORIPENEM HYDRATE [Concomitant]
     Indication: ANTIBIOTIC PROPHYLAXIS
     Dosage: UNK
     Dates: start: 20101004, end: 20101107

REACTIONS (4)
  - THROMBOTIC MICROANGIOPATHY [None]
  - GRAFT VERSUS HOST DISEASE [None]
  - CYTOMEGALOVIRUS TEST POSITIVE [None]
  - ACUTE LYMPHOCYTIC LEUKAEMIA RECURRENT [None]
